FAERS Safety Report 7916668-9 (Version None)
Quarter: 2011Q4

REPORT INFORMATION
  Report Type: 
  Country: None (occurrence: None)
  Receive Date: 20111116
  Receipt Date: 20111104
  Transmission Date: 20120403
  Serious: Yes (Other)
  Sender: FDA-Public Use
  Company Number: US-BAYER-201036097NA

PATIENT
  Age: 21 Year
  Sex: Female
  Weight: 56.236 kg

DRUGS (5)
  1. YASMIN [Suspect]
  2. ZOLOFT [Concomitant]
     Dosage: UNK
     Dates: start: 20090721
  3. DROSPIRENONE AND ETHINYL ESTRADIOL [Suspect]
     Route: 048
  4. MOTRIN [Concomitant]
     Dosage: 800 MG, TID WITH MEALS
  5. YAZ [Suspect]

REACTIONS (6)
  - CHOLECYSTITIS CHRONIC [None]
  - CHOLECYSTECTOMY [None]
  - ABDOMINAL DISTENSION [None]
  - PAIN [None]
  - FLATULENCE [None]
  - SCAR [None]
